FAERS Safety Report 9648155 (Version 1)
Quarter: 2013Q4

REPORT INFORMATION
  Report Type: Spontaneous
  Country: FR (occurrence: FR)
  Receive Date: 20131028
  Receipt Date: 20131028
  Transmission Date: 20140711
  Serious: Yes (Other)
  Sender: FDA-Public Use
  Company Number: PHHY2013FR120788

PATIENT
  Age: 28 Year
  Sex: Female

DRUGS (3)
  1. VOLTARENE [Suspect]
     Indication: NECK PAIN
     Dosage: 50 MG, 2 OR 3 TABLETS
     Route: 048
  2. LYRICA [Suspect]
     Indication: NECK PAIN
     Dosage: 50 MG, QD
     Route: 048
     Dates: start: 20131004, end: 20131007
  3. DOLIPRANE [Suspect]
     Indication: NECK PAIN
     Dosage: 1 G, TID
     Route: 048

REACTIONS (2)
  - Cholestasis [Unknown]
  - Transaminases increased [Unknown]
